FAERS Safety Report 22124573 (Version 2)
Quarter: 2023Q1

REPORT INFORMATION
  Report Type: Spontaneous
  Country: US (occurrence: US)
  Receive Date: 20230322
  Receipt Date: 20230328
  Transmission Date: 20230418
  Serious: No
  Sender: FDA-Public Use
  Company Number: US-PFIZER INC-PV202300049858

PATIENT
  Age: 65 Year
  Sex: Female
  Weight: 47.63 kg

DRUGS (2)
  1. XELJANZ XR [Suspect]
     Active Substance: TOFACITINIB CITRATE
     Indication: Rheumatoid arthritis
     Dosage: 11 MG, 1X/DAY
     Route: 048
  2. XELJANZ XR [Suspect]
     Active Substance: TOFACITINIB CITRATE
     Indication: Psoriatic arthropathy

REACTIONS (13)
  - Intentional product misuse [Unknown]
  - Malaise [Unknown]
  - Pain [Not Recovered/Not Resolved]
  - Arthralgia [Unknown]
  - Pain in extremity [Unknown]
  - Arthralgia [Unknown]
  - Myalgia [Unknown]
  - Musculoskeletal stiffness [Unknown]
  - Condition aggravated [Unknown]
  - Stress [Unknown]
  - Synovitis [Unknown]
  - Insomnia [Unknown]
  - Eye disorder [Unknown]
